FAERS Safety Report 9524242 (Version 1)
Quarter: 2013Q1

REPORT INFORMATION
  Report Type: Spontaneous
  Country: US (occurrence: None)
  Receive Date: 20130305
  Receipt Date: 20130305
  Transmission Date: 20140127
  Serious: Yes (Other)
  Sender: FDA-Public Use
  Company Number: 163-21880-12031092

PATIENT
  Age: 73 Year
  Sex: Female
  Weight: 88 kg

DRUGS (1)
  1. REVLIMID (LENALIDOMIDE) (CAPSULES) [Suspect]
     Indication: PLASMA CELL MYELOMA
     Dosage: 10 MG, 21 IN 28 D, PO
     Route: 048
     Dates: start: 20101001

REACTIONS (4)
  - Oedema peripheral [None]
  - Skin exfoliation [None]
  - Fatigue [None]
  - Contusion [None]
